FAERS Safety Report 5386113-9 (Version None)
Quarter: 2007Q3

REPORT INFORMATION
  Report Type: 
  Country: None (occurrence: None)
  Receive Date: 20070713
  Receipt Date: 20070710
  Transmission Date: 20080115
  Serious: Yes (Hospitalization)
  Sender: FDA-Public Use
  Company Number: JP-SP-2007-02500

PATIENT
  Age: 60 Year
  Sex: Male

DRUGS (1)
  1. IMMUCYST [Suspect]
     Indication: BLADDER CANCER
     Route: 043
     Dates: start: 20051026, end: 20070101

REACTIONS (3)
  - BOVINE TUBERCULOSIS [None]
  - JAUNDICE [None]
  - PYREXIA [None]
